FAERS Safety Report 8382185-8 (Version None)
Quarter: 2012Q2

REPORT INFORMATION
  Report Type: 
  Country: None (occurrence: None)
  Receive Date: 20120511
  Receipt Date: 20120502
  Transmission Date: 20120825
  Serious: Yes (Hospitalization)
  Sender: FDA-Public Use
  Company Number: AEUSA201200234

PATIENT
  Age: 53 Year
  Sex: Female
  Weight: 57.15 kg

DRUGS (5)
  1. PROLASTIN [Suspect]
     Indication: ALPHA-1 ANTI-TRYPSIN DEFICIENCY
     Dosage: 3513 MG;QW;IV
     Route: 042
     Dates: start: 20120430, end: 20120430
  2. DIPHENHYDRAMINE HCL [Suspect]
     Indication: RASH
     Dosage: PO
     Route: 048
     Dates: start: 20120501
  3. DIPHENHYDRAMINE HCL [Suspect]
     Indication: PRURITUS
     Dosage: PO
     Route: 048
     Dates: start: 20120501
  4. CORTICOSTEROIDS [Suspect]
     Indication: PRURITUS
     Dates: start: 20120501, end: 20120501
  5. CORTICOSTEROIDS [Suspect]
     Indication: RASH
     Dates: start: 20120501, end: 20120501

REACTIONS (8)
  - ANXIETY [None]
  - OEDEMA PERIPHERAL [None]
  - RASH MACULO-PAPULAR [None]
  - JOINT SWELLING [None]
  - PRURITUS [None]
  - PALPITATIONS [None]
  - BLOOD POTASSIUM DECREASED [None]
  - INFUSION RELATED REACTION [None]
